FAERS Safety Report 25777438 (Version 1)
Quarter: 2025Q3

REPORT INFORMATION
  Report Type: Report from Study
  Country: CA (occurrence: CA)
  Receive Date: 20250909
  Receipt Date: 20250909
  Transmission Date: 20251021
  Serious: Yes (Death, Other)
  Sender: TEVA
  Company Number: CA-TEVA-VS-3370951

PATIENT
  Age: 71 Year
  Sex: Female

DRUGS (4)
  1. RAMIPRIL [Suspect]
     Active Substance: RAMIPRIL
     Indication: Hypertension
     Route: 048
  2. SIMLANDI [Suspect]
     Active Substance: ADALIMUMAB-RYVK
     Indication: Ankylosing spondylitis
     Route: 058
  3. SIMLANDI [Suspect]
     Active Substance: ADALIMUMAB-RYVK
     Indication: Ankylosing spondylitis
     Route: 058
  4. SIMLANDI [Suspect]
     Active Substance: ADALIMUMAB-RYVK
     Indication: Ankylosing spondylitis
     Route: 058

REACTIONS (13)
  - Respiratory failure [Fatal]
  - Insurance issue [Fatal]
  - Muscle spasms [Fatal]
  - Gastrooesophageal reflux disease [Fatal]
  - Malaise [Fatal]
  - Flatulence [Fatal]
  - Inappropriate schedule of product administration [Fatal]
  - Off label use [Fatal]
  - Cough [Fatal]
  - Chest pain [Fatal]
  - Nasopharyngitis [Fatal]
  - Blood pressure increased [Fatal]
  - Product dose omission issue [Fatal]
